FAERS Safety Report 6565325-2 (Version None)
Quarter: 2010Q1

REPORT INFORMATION
  Report Type: 
  Country: None (occurrence: None)
  Receive Date: 20100201
  Receipt Date: 20100127
  Transmission Date: 20100710
  Serious: Yes (Hospitalization)
  Sender: FDA-Public Use
  Company Number: NO-ROCHE-682192

PATIENT
  Age: 45 Year
  Sex: Female

DRUGS (3)
  1. VALIUM [Suspect]
     Indication: PSYCHOTIC DISORDER
     Route: 065
     Dates: start: 20091101
  2. ABILIFY [Suspect]
     Indication: PSYCHOTIC DISORDER
     Route: 065
     Dates: start: 20091101
  3. TRAMADOL HCL [Concomitant]

REACTIONS (3)
  - HYPOTENSION [None]
  - NAUSEA [None]
  - SYNCOPE [None]
